FAERS Safety Report 25849358 (Version 1)
Quarter: 2025Q3

REPORT INFORMATION
  Report Type: Spontaneous
  Country: CN (occurrence: CN)
  Receive Date: 20250925
  Receipt Date: 20250925
  Transmission Date: 20251020
  Serious: Yes (Other)
  Sender: ALEXION PHARMACEUTICALS
  Company Number: CN-ASTRAZENECA-202509CHN020041CN

PATIENT
  Age: 80 Year
  Sex: Male
  Weight: 69 kg

DRUGS (1)
  1. TAGRISSO [Suspect]
     Active Substance: OSIMERTINIB
     Indication: Neoplasm prophylaxis
     Dosage: 160.000 MILLIGRAM, QD
     Dates: start: 20250819, end: 20250919

REACTIONS (8)
  - Indifference [Not Recovered/Not Resolved]
  - Slow response to stimuli [Not Recovered/Not Resolved]
  - Bradykinesia [Not Recovered/Not Resolved]
  - Dysuria [Not Recovered/Not Resolved]
  - Musculoskeletal disorder [Not Recovered/Not Resolved]
  - Dyschezia [Not Recovered/Not Resolved]
  - Decreased appetite [Not Recovered/Not Resolved]
  - Intracranial pressure increased [Not Recovered/Not Resolved]

NARRATIVE: CASE EVENT DATE: 20250920
